FAERS Safety Report 5476118-1 (Version None)
Quarter: 2007Q4

REPORT INFORMATION
  Report Type: 
  Country: None (occurrence: None)
  Receive Date: 20071003
  Receipt Date: 20070924
  Transmission Date: 20080405
  Serious: Yes (Hospitalization, Other)
  Sender: FDA-Public Use
  Company Number: US-ELI_LILLY_AND_COMPANY-US200709002925

PATIENT
  Age: 89 Year
  Sex: Female

DRUGS (7)
  1. CYMBALTA [Suspect]
     Indication: ARTHRALGIA
     Dosage: 20 MG, UNK
     Dates: start: 20070101
  2. CYMBALTA [Suspect]
     Dosage: 10 MG, UNK
     Dates: start: 20070701, end: 20070101
  3. ZOLOFT [Concomitant]
     Indication: DEPRESSION
  4. DIURETICS [Concomitant]
  5. DIAZEPAM [Concomitant]
  6. AMBIEN [Concomitant]
  7. VICODIN [Concomitant]

REACTIONS (5)
  - FALL [None]
  - FEMUR FRACTURE [None]
  - HYPERTENSION [None]
  - LOSS OF CONSCIOUSNESS [None]
  - TACHYCARDIA [None]
